FAERS Safety Report 25369510 (Version 2)
Quarter: 2025Q2

REPORT INFORMATION
  Report Type: Spontaneous
  Country: US (occurrence: US)
  Receive Date: 20250528
  Receipt Date: 20250531
  Transmission Date: 20250716
  Serious: No
  Sender: CIPLA
  Company Number: US-CIPLA LTD.-2024US13696

PATIENT

DRUGS (7)
  1. ALBUTEROL [Suspect]
     Active Substance: ALBUTEROL
     Indication: Respiratory tract congestion
     Dates: start: 2023
  2. ALBUTEROL [Suspect]
     Active Substance: ALBUTEROL
  3. ALBUTEROL [Suspect]
     Active Substance: ALBUTEROL
     Dates: start: 202411
  4. IBUPROFEN [Concomitant]
     Active Substance: IBUPROFEN
     Indication: Arthralgia
     Dosage: 800 MILLIGRAM, TID
     Route: 048
     Dates: start: 20240923
  5. SIMVASTATIN [Concomitant]
     Active Substance: SIMVASTATIN
     Indication: Blood cholesterol increased
     Dosage: 20 MILLIGRAM, QD (ONCE A DAY), (FROM ABOUT 3 TO 4 YEARS I.E., ABOUT 2020 TO 2021)
     Route: 048
  6. AMLODIPINE [Concomitant]
     Active Substance: AMLODIPINE BESYLATE
     Indication: Hypertension
     Dosage: 10 MILLIGRAM, QD (FOR 5 YEARS)
     Route: 048
     Dates: start: 2019
  7. BENAZEPRIL [Concomitant]
     Active Substance: BENAZEPRIL HYDROCHLORIDE
     Indication: Hypertension
     Dosage: 20 MILLIGRAM, QD (FOR 5 YEARS)
     Route: 048
     Dates: start: 2019

REACTIONS (4)
  - Drug dose omission by device [Unknown]
  - Inappropriate schedule of product administration [Unknown]
  - Device delivery system issue [Unknown]
  - Device mechanical issue [Unknown]

NARRATIVE: CASE EVENT DATE: 20241101
